FAERS Safety Report 15849685 (Version 1)
Quarter: 2019Q1

REPORT INFORMATION
  Report Type: Spontaneous
  Country: IT (occurrence: IT)
  Receive Date: 20190121
  Receipt Date: 20190121
  Transmission Date: 20190417
  Serious: Yes (Death, Other)
  Sender: FDA-Public Use
  Company Number: IT-MYLANLABS-2019M1004986

PATIENT
  Age: 58 Year
  Sex: Male

DRUGS (5)
  1. DAUNORUBICIN HYDROCHLORIDE. [Suspect]
     Active Substance: DAUNORUBICIN HYDROCHLORIDE
     Indication: ACUTE MYELOID LEUKAEMIA
     Dosage: 50 MG/M2, ALTERNATE DAY (DAYS 1, 3, 5) CYCLIC, (INDUCTION COURSE)
     Route: 042
  2. FLUCONAZOLE. [Concomitant]
     Active Substance: FLUCONAZOLE
     Dosage: UNK
  3. CYTARABINE. [Suspect]
     Active Substance: CYTARABINE
     Indication: ACUTE MYELOID LEUKAEMIA
     Dosage: 100 MG/M2, CYCLIC, (C.I . DAYS 1-10)
     Route: 040
  4. CYTARABINE. [Suspect]
     Active Substance: CYTARABINE
     Dosage: 25 MG/M2, CYCLIC, (INDUCTION COURSE)
     Route: 040
  5. ETOPOSIDE. [Suspect]
     Active Substance: ETOPOSIDE
     Indication: ACUTE MYELOID LEUKAEMIA
     Dosage: 100 MG/M2, CYCLIC, (DAYS 1-5), (INDUCTION COURSE)
     Route: 042

REACTIONS (1)
  - Aspergillus infection [Fatal]
